FAERS Safety Report 4603986-5 (Version None)
Quarter: 2005Q1

REPORT INFORMATION
  Report Type: 
  Country: None (occurrence: None)
  Receive Date: 20050310
  Receipt Date: 20050224
  Transmission Date: 20050727
  Serious: Yes (Other)
  Sender: FDA-Public Use
  Company Number: US-GLAXOSMITHKLINE-A0547105A

PATIENT
  Age: 72 Year
  Sex: Female

DRUGS (2)
  1. ECOTRIN REGULAR STRENGTH TABLETS [Suspect]
     Indication: HEADACHE
     Dates: start: 20000101
  2. ECOTRIN MAXIMUM STRENGTH TABLETS [Suspect]
     Indication: HEADACHE

REACTIONS (2)
  - CATARACT [None]
  - DRUG INEFFECTIVE [None]
